FAERS Safety Report 25956736 (Version 1)
Quarter: 2025Q4

REPORT INFORMATION
  Report Type: Spontaneous
  Country: US (occurrence: US)
  Receive Date: 20251024
  Receipt Date: 20251024
  Transmission Date: 20260118
  Serious: No
  Sender: Kenvue
  Company Number: US-KENVUE-20251000101

PATIENT
  Age: 64 Year
  Sex: Male

DRUGS (1)
  1. MENS ROGAINE EXTRA STRENGTH [Suspect]
     Active Substance: MINOXIDIL
     Indication: Alopecia
     Dosage: HALF A CUP FULL, AND MAYBE OVER, APPROXIMATE 16-SEP-2025 HALF A CUP FULL. 2X A DAY.
     Route: 065
     Dates: start: 20250916, end: 202509

REACTIONS (3)
  - Application site irritation [Not Recovered/Not Resolved]
  - Overdose [Unknown]
  - Product administered at inappropriate site [Unknown]

NARRATIVE: CASE EVENT DATE: 20250916
